FAERS Safety Report 9345045 (Version 3)
Quarter: 2013Q3

REPORT INFORMATION
  Report Type: Spontaneous
  Country: FR (occurrence: FR)
  Receive Date: 20130612
  Receipt Date: 20130814
  Transmission Date: 20140515
  Serious: Yes (Death, Other)
  Sender: FDA-Public Use
  Company Number: FR-TEVA-411551ISR

PATIENT
  Age: 61 Year
  Sex: Female

DRUGS (13)
  1. FUROSEMIDE TEVA 40 MG [Suspect]
     Dosage: 40 MILLIGRAM DAILY; DIVISIBLE TABLETS
     Route: 048
  2. MIANSERINE 30 MG [Concomitant]
     Dosage: 60 MILLIGRAM DAILY; EVENING
     Route: 048
  3. RASILEZ 150MG [Concomitant]
     Dosage: 300 MILLIGRAM DAILY; MORNING
     Route: 048
  4. AMLODIPINE 5 MG [Concomitant]
     Dosage: 10 MILLIGRAM DAILY; MORNING
     Route: 048
  5. KARDEGIC 75 MG POWDER FOR DRINKABLE SOLUTION IN SACHET - DOSE [Concomitant]
     Dosage: 75 MILLIGRAM DAILY; LUNCH
     Route: 048
  6. METFORMIN TEVA 1000 MG [Concomitant]
     Dosage: 2000 MILLIGRAM DAILY; MORNING AND EVENING
     Route: 048
  7. NEBIVOLOL ARROW 5 MG QUADRIDIVISIBLE TABLETS [Concomitant]
     Dosage: 2.5 MILLIGRAM DAILY; MORNING
     Route: 048
  8. PAROXETINE 20 MG [Concomitant]
     Dosage: 20 MILLIGRAM DAILY; MORNING
     Route: 048
  9. ATARAX 25 MG DIVISIBLE [Concomitant]
     Dosage: 75 MILLIGRAM DAILY;
     Route: 048
  10. LYRICA 100MG GELULE [Concomitant]
     Dosage: 200 MILLIGRAM DAILY; MORNING AND EVENING
     Route: 048
  11. TRAMADOL TEVA 200 MG [Concomitant]
     Dosage: 400 MILLIGRAM DAILY; MORNING AND EVENING
     Route: 048
  12. DIFFU K [Concomitant]
     Dosage: 2 DOSAGE FORMS DAILY; MORNING AND EVENING
     Route: 048
  13. DOLIPRANE 1G [Concomitant]
     Dosage: 4 DOSAGE FORMS DAILY;
     Route: 048

REACTIONS (2)
  - Sudden death [Fatal]
  - Somnolence [Recovered/Resolved]
